FAERS Safety Report 7319278-X (Version None)
Quarter: 2011Q1

REPORT INFORMATION
  Report Type: 
  Country: None (occurrence: None)
  Receive Date: 20110223
  Receipt Date: 20110223
  Transmission Date: 20110831
  Serious: Yes (Life-Threatening, Hospitalization)
  Sender: FDA-Public Use
  Company Number: None

PATIENT
  Age: 70 Year
  Sex: Female
  Weight: 63.5036 kg

DRUGS (1)
  1. OMEPRAZOLE/PRILOSEC 20MG MERCK [Suspect]
     Indication: GASTROOESOPHAGEAL REFLUX DISEASE
     Dosage: ONE CAPSULE DAILY PO
     Route: 048
     Dates: start: 20101116, end: 20110207

REACTIONS (2)
  - MALAISE [None]
  - TUBULOINTERSTITIAL NEPHRITIS [None]
